FAERS Safety Report 7709745-9 (Version None)
Quarter: 2011Q3

REPORT INFORMATION
  Report Type: 
  Country: None (occurrence: None)
  Receive Date: 20110825
  Receipt Date: 20110811
  Transmission Date: 20111222
  Serious: Yes (Hospitalization)
  Sender: FDA-Public Use
  Company Number: DE-GENENTECH-322204

PATIENT
  Age: 74 Year
  Sex: Male
  Weight: 82 kg

DRUGS (5)
  1. ATROVENT [Concomitant]
     Indication: PRODUCT USED FOR UNKNOWN INDICATION
     Dosage: UNK
     Dates: start: 20110725
  2. LENALIDOMIDE [Suspect]
     Dosage: UNK
     Route: 048
     Dates: start: 20110729
  3. LENALIDOMIDE [Suspect]
     Indication: CHRONIC LYMPHOCYTIC LEUKAEMIA
     Dosage: 2.5 MG, UNK
     Route: 048
     Dates: start: 20110715
  4. RITUXIMAB [Suspect]
     Indication: CHRONIC LYMPHOCYTIC LEUKAEMIA
     Dosage: 746.99 MG, UNK
     Route: 042
     Dates: start: 20110714
  5. BENDAMUSTINE [Suspect]
     Indication: CHRONIC LYMPHOCYTIC LEUKAEMIA
     Dosage: 99.5 MG, UNK
     Route: 042
     Dates: start: 20110715

REACTIONS (4)
  - SYNCOPE [None]
  - ANAEMIA [None]
  - FEBRILE NEUTROPENIA [None]
  - INFECTION [None]
